FAERS Safety Report 8022366-6 (Version None)
Quarter: 2011Q4

REPORT INFORMATION
  Report Type: 
  Country: None (occurrence: None)
  Receive Date: 20111123
  Receipt Date: 20110923
  Transmission Date: 20120403
  Serious: No
  Sender: FDA-Public Use
  Company Number: 335282

PATIENT
  Age: 46 Year
  Sex: Female

DRUGS (1)
  1. VICTOZA [Suspect]
     Indication: TYPE 2 DIABETES MELLITUS
     Dosage: BETWEEN 0.6 AND 1.2, QD, SUBCUTANEOUS
     Route: 058
     Dates: start: 20110813

REACTIONS (1)
  - BLOOD TRIGLYCERIDES INCREASED [None]
